FAERS Safety Report 6404057-8 (Version None)
Quarter: 2009Q4

REPORT INFORMATION
  Report Type: 
  Country: None (occurrence: None)
  Receive Date: 20091016
  Receipt Date: 20090824
  Transmission Date: 20100525
  Serious: No
  Sender: FDA-Public Use
  Company Number: US-ALEXION-A200900688

PATIENT
  Sex: Female

DRUGS (5)
  1. SOLIRIS [Suspect]
     Indication: PAROXYSMAL NOCTURNAL HAEMOGLOBINURIA
     Dosage: 600 MG, QW
     Route: 042
     Dates: start: 20070605, end: 20070626
  2. SOLIRIS [Suspect]
     Dosage: 900 MG, Q2W
     Route: 042
     Dates: start: 20070703
  3. WARFARIN SODIUM [Concomitant]
     Indication: ANTICOAGULANT THERAPY
     Dosage: 7.5 MG, QD
     Route: 048
  4. TOPAMAX [Concomitant]
     Indication: MIGRAINE
     Dosage: 125 MG, BID
     Route: 048
  5. SYNTHROID [Concomitant]
     Indication: HYPOTHYROIDISM
     Dosage: 150 MCG, QD
     Route: 048

REACTIONS (2)
  - DERMATITIS CONTACT [None]
  - IMPLANT SITE HAEMATOMA [None]
